FAERS Safety Report 6444858-3 (Version None)
Quarter: 2009Q4

REPORT INFORMATION
  Report Type: 
  Country: None (occurrence: None)
  Receive Date: 20091110
  Receipt Date: 20090922
  Transmission Date: 20100525
  Serious: No
  Sender: FDA-Public Use
  Company Number: 1000009034

PATIENT
  Age: 50 Year
  Sex: Female

DRUGS (2)
  1. SAVELLA [Suspect]
     Indication: FIBROMYALGIA
     Dosage: 12.5 MG (12.5 MG, 1 IN 1 D), ORAL
     Route: 048
  2. SAVELLA [Suspect]
     Indication: FIBROMYALGIA
     Dosage: 25 MG (12.5 MG, 2 IN 1 D), ORAL
     Route: 048

REACTIONS (5)
  - FEELING ABNORMAL [None]
  - HOT FLUSH [None]
  - MICTURITION DISORDER [None]
  - PALPITATIONS [None]
  - TREMOR [None]
